FAERS Safety Report 16496510 (Version 2)
Quarter: 2019Q3

REPORT INFORMATION
  Report Type: Spontaneous
  Country: AU (occurrence: AU)
  Receive Date: 20190628
  Receipt Date: 20190801
  Transmission Date: 20191004
  Serious: Yes (Hospitalization, Other)
  Sender: FDA-Public Use
  Company Number: AU-BIOMARINAP-AU-2019-124371

PATIENT
  Age: 17 Year
  Sex: Male
  Weight: 67.5 kg

DRUGS (3)
  1. KUVAN [Suspect]
     Active Substance: SAPROPTERIN DIHYDROCHLORIDE
     Indication: PHENYLKETONURIA
     Dosage: 1400 MILLIGRAM, QD
     Route: 048
     Dates: start: 20190524
  2. EPILIM [Concomitant]
     Active Substance: VALPROATE SODIUM
     Indication: SEIZURE
  3. VALPROATE [Concomitant]
     Active Substance: VALPROIC ACID
     Indication: PRODUCT USED FOR UNKNOWN INDICATION
     Dosage: 400 MILLIGRAM, BID

REACTIONS (4)
  - Postictal state [Recovered/Resolved]
  - Weight increased [Unknown]
  - Seizure [Recovered/Resolved]
  - Anxiety [Unknown]

NARRATIVE: CASE EVENT DATE: 20190624
